FAERS Safety Report 14211671 (Version 1)
Quarter: 2017Q4

REPORT INFORMATION
  Report Type: Spontaneous
  Country: US (occurrence: US)
  Receive Date: 20171121
  Receipt Date: 20171121
  Transmission Date: 20180321
  Serious: No
  Sender: FDA-Public Use
  Company Number: US-ELI_LILLY_AND_COMPANY-US201710009975

PATIENT
  Age: 71 Year
  Sex: Male

DRUGS (20)
  1. LOPRESSOR [Concomitant]
     Active Substance: METOPROLOL TARTRATE
     Indication: PRODUCT USED FOR UNKNOWN INDICATION
     Dosage: UNK, UNKNOWN
     Route: 065
  2. FLONASE [Concomitant]
     Active Substance: FLUTICASONE PROPIONATE
     Indication: PRODUCT USED FOR UNKNOWN INDICATION
     Dosage: UNK, UNKNOWN
     Route: 065
  3. FLOMAX [Concomitant]
     Active Substance: TAMSULOSIN HYDROCHLORIDE
     Indication: PRODUCT USED FOR UNKNOWN INDICATION
     Dosage: UNK, UNKNOWN
     Route: 065
  4. DURAGESIC [Concomitant]
     Active Substance: FENTANYL
     Indication: PRODUCT USED FOR UNKNOWN INDICATION
     Dosage: UNK, UNKNOWN
     Route: 065
  5. IMDUR [Concomitant]
     Active Substance: ISOSORBIDE MONONITRATE
     Indication: PRODUCT USED FOR UNKNOWN INDICATION
     Dosage: UNK, UNKNOWN
     Route: 065
  6. MELATONIN [Concomitant]
     Active Substance: MELATONIN
     Indication: PRODUCT USED FOR UNKNOWN INDICATION
  7. GINSENG                            /01384001/ [Concomitant]
     Active Substance: ASIAN GINSENG
     Indication: PRODUCT USED FOR UNKNOWN INDICATION
     Dosage: UNK, UNKNOWN
     Route: 065
  8. COMPAZINE                          /00013304/ [Concomitant]
     Active Substance: PROCHLORPERAZINE MALEATE
     Indication: PRODUCT USED FOR UNKNOWN INDICATION
     Dosage: UNK, UNKNOWN
     Route: 065
  9. NORVASC [Concomitant]
     Active Substance: AMLODIPINE BESYLATE
     Indication: PRODUCT USED FOR UNKNOWN INDICATION
  10. ZOFRAN [Suspect]
     Active Substance: ONDANSETRON HYDROCHLORIDE
     Indication: SUPPLEMENTATION THERAPY
     Dosage: UNK, UNKNOWN
     Route: 065
  11. PEPCID [Suspect]
     Active Substance: FAMOTIDINE
     Indication: SUPPLEMENTATION THERAPY
  12. COLACE [Concomitant]
     Active Substance: DOCUSATE SODIUM
     Indication: PRODUCT USED FOR UNKNOWN INDICATION
     Dosage: UNK, UNKNOWN
     Route: 065
  13. ROXICODONE [Concomitant]
     Active Substance: OXYCODONE HYDROCHLORIDE
     Indication: PRODUCT USED FOR UNKNOWN INDICATION
     Dosage: UNK, UNKNOWN
     Route: 065
  14. CYRAMZA [Suspect]
     Active Substance: RAMUCIRUMAB
     Indication: OESOPHAGEAL ADENOCARCINOMA
     Dosage: 570 MG, CYCLICAL
     Route: 042
     Dates: start: 20170823
  15. DEXAMETHASONE. [Concomitant]
     Active Substance: DEXAMETHASONE
     Indication: PRODUCT USED FOR UNKNOWN INDICATION
  16. PROZAC [Concomitant]
     Active Substance: FLUOXETINE HYDROCHLORIDE
     Indication: PRODUCT USED FOR UNKNOWN INDICATION
     Dosage: UNK, UNKNOWN
     Route: 065
  17. LIPITOR [Concomitant]
     Active Substance: ATORVASTATIN CALCIUM
     Indication: PRODUCT USED FOR UNKNOWN INDICATION
     Dosage: UNK, UNKNOWN
     Route: 065
  18. BENADRYL [Suspect]
     Active Substance: DIPHENHYDRAMINE HYDROCHLORIDE
     Indication: SUPPLEMENTATION THERAPY
     Dosage: UNK, UNKNOWN
     Route: 065
  19. DEXAMETHASONE. [Suspect]
     Active Substance: DEXAMETHASONE
     Indication: SUPPLEMENTATION THERAPY
     Dosage: UNK, UNKNOWN
     Route: 065
  20. PACLITAXEL. [Concomitant]
     Active Substance: PACLITAXEL
     Indication: OESOPHAGEAL ADENOCARCINOMA
     Dosage: UNK, UNKNOWN
     Route: 065

REACTIONS (1)
  - Chills [Not Recovered/Not Resolved]

NARRATIVE: CASE EVENT DATE: 20171024
